FAERS Safety Report 7479121-5 (Version None)
Quarter: 2011Q2

REPORT INFORMATION
  Report Type: 
  Country: None (occurrence: None)
  Receive Date: 20110513
  Receipt Date: 20110506
  Transmission Date: 20111010
  Serious: Yes (Hospitalization)
  Sender: FDA-Public Use
  Company Number: US-JNJFOC-20110505091

PATIENT
  Sex: Female

DRUGS (2)
  1. NUCYNTA [Suspect]
     Indication: PROCEDURAL PAIN
     Route: 048
  2. SSRI [Concomitant]
     Route: 065

REACTIONS (1)
  - CONFUSIONAL STATE [None]
